FAERS Safety Report 23552765 (Version 1)
Quarter: 2024Q1

REPORT INFORMATION
  Report Type: Spontaneous
  Country: GB (occurrence: GB)
  Receive Date: 20240222
  Receipt Date: 20240222
  Transmission Date: 20240410
  Serious: Yes (Hospitalization)
  Sender: FDA-Public Use
  Company Number: GB-MYLANLABS-2024M1016318

PATIENT
  Age: 74 Year
  Sex: Male

DRUGS (2)
  1. ENTACAPONE [Suspect]
     Active Substance: ENTACAPONE
     Indication: Parkinson^s disease
     Dosage: UNK
     Route: 065
  2. LOPERAMIDE [Suspect]
     Active Substance: LOPERAMIDE
     Indication: Colitis microscopic
     Dosage: UNK
     Route: 065

REACTIONS (9)
  - Colitis microscopic [Recovering/Resolving]
  - Hypovolaemia [Recovering/Resolving]
  - Delirium [Recovering/Resolving]
  - Renal impairment [Recovering/Resolving]
  - Blood electrolytes abnormal [Recovering/Resolving]
  - Sarcopenia [Recovering/Resolving]
  - Asthenia [Recovering/Resolving]
  - Physical deconditioning [Recovering/Resolving]
  - Drug ineffective [Unknown]
